FAERS Safety Report 4446415-7 (Version None)
Quarter: 2004Q3

REPORT INFORMATION
  Report Type: 
  Country: None (occurrence: None)
  Receive Date: 20040902
  Receipt Date: 20040818
  Transmission Date: 20050211
  Serious: Yes (Other)
  Sender: FDA-Public Use
  Company Number: US_0408104885

PATIENT
  Age: 29 Year
  Sex: Female

DRUGS (1)
  1. GEMCITABINE HYDROCHLORIDE-IV (GEMCITABINE) [Suspect]
     Indication: BREAST CANCER
     Dosage: 1000 MG/M2
     Dates: start: 20040701

REACTIONS (4)
  - ABDOMINAL PAIN UPPER [None]
  - HERPES VIRUS INFECTION [None]
  - NUCHAL RIGIDITY [None]
  - VOMITING [None]
